FAERS Safety Report 9847521 (Version 1)
Quarter: 2014Q1

REPORT INFORMATION
  Report Type: Report from Study
  Country: ID (occurrence: ID)
  Receive Date: 20140128
  Receipt Date: 20140128
  Transmission Date: 20141002
  Serious: Yes (Death, Hospitalization)
  Sender: FDA-Public Use
  Company Number: ID-ROCHE-1336578

PATIENT
  Sex: Male

DRUGS (5)
  1. MABTHERA [Suspect]
     Indication: LYMPHOMA
     Route: 065
  2. CYCLOPHOSPHAMIDE [Concomitant]
     Indication: LYMPHOMA
  3. DOXORUBICIN HYDROCHLORIDE [Concomitant]
     Indication: LYMPHOMA
  4. VINCRISTINE SULFATE [Concomitant]
     Indication: LYMPHOMA
  5. PREDNISONE [Concomitant]
     Indication: LYMPHOMA

REACTIONS (3)
  - Lung disorder [Fatal]
  - General physical health deterioration [Unknown]
  - Decreased appetite [Unknown]
